FAERS Safety Report 9644894 (Version 2)
Quarter: 2013Q4

REPORT INFORMATION
  Report Type: Report from Study
  Country: CA (occurrence: CA)
  Receive Date: 20131025
  Receipt Date: 20131122
  Transmission Date: 20140711
  Serious: Yes (Hospitalization)
  Sender: FDA-Public Use
  Company Number: PHHY2013CA120345

PATIENT
  Age: 79 Year
  Sex: Female

DRUGS (12)
  1. ACLASTA [Suspect]
     Indication: OSTEOPOROSIS
     Dosage: 5 MG, UNK
     Route: 042
     Dates: start: 20090727
  2. ACLASTA [Suspect]
     Dosage: 5 MG, UNK
     Route: 042
     Dates: start: 20100730
  3. ACLASTA [Suspect]
     Dosage: 5 MG, UNK
     Route: 042
     Dates: start: 20110805
  4. ACLASTA [Suspect]
     Dosage: 5 MG, UNK
     Route: 042
     Dates: start: 20121002
  5. CALCIUM [Concomitant]
  6. VIT D [Concomitant]
  7. METOPROLOL [Concomitant]
  8. PANTOLOC ^BYK^ [Concomitant]
  9. ATORVASTATIN [Concomitant]
  10. ATIVAN [Concomitant]
  11. LIPITOR [Concomitant]
  12. ASA [Concomitant]

REACTIONS (6)
  - Angina pectoris [Unknown]
  - Myalgia [Unknown]
  - Hypokinesia [Unknown]
  - Chest pain [Unknown]
  - Asthenia [Unknown]
  - Musculoskeletal pain [Unknown]
